FAERS Safety Report 9931532 (Version 3)
Quarter: 2014Q2

REPORT INFORMATION
  Report Type: Spontaneous
  Country: US (occurrence: US)
  Receive Date: 20140228
  Receipt Date: 20140429
  Transmission Date: 20141212
  Serious: Yes (Other)
  Sender: FDA-Public Use
  Company Number: US-009507513-1402USA010838

PATIENT
  Sex: Female
  Weight: 81.18 kg

DRUGS (1)
  1. NEXPLANON [Suspect]
     Dosage: 1 ROD
     Route: 059
     Dates: start: 20130607, end: 20140218

REACTIONS (3)
  - Device breakage [Recovered/Resolved]
  - Menstruation irregular [Unknown]
  - Hot flush [Unknown]
